FAERS Safety Report 9704984 (Version 1)
Quarter: 2013Q4

REPORT INFORMATION
  Report Type: Spontaneous
  Country: US (occurrence: US)
  Receive Date: 20131122
  Receipt Date: 20131122
  Transmission Date: 20140711
  Serious: No
  Sender: FDA-Public Use
  Company Number: US-ABBVIE-13P-163-1134638-00

PATIENT
  Age: 75 Year
  Sex: Male
  Weight: 74.91 kg

DRUGS (5)
  1. ANDROGEL [Suspect]
     Indication: BLOOD TESTOSTERONE DECREASED
     Dosage: 40.5 MILLIGRAMS DAILY
     Route: 061
     Dates: start: 20130701
  2. FLUDROCORTISONE [Concomitant]
     Indication: HYPERTENSION
  3. LEVOTHYROXINE [Concomitant]
     Indication: HYPOTHYROIDISM
  4. HYDROCORTISONE [Concomitant]
     Indication: ADRENAL DISORDER
  5. XANAX [Concomitant]
     Indication: INSOMNIA

REACTIONS (1)
  - Weight increased [Not Recovered/Not Resolved]
